FAERS Safety Report 23555007 (Version 1)
Quarter: 2024Q1

REPORT INFORMATION
  Report Type: Spontaneous
  Country: US (occurrence: None)
  Receive Date: 20240222
  Receipt Date: 20240222
  Transmission Date: 20240409
  Serious: Yes (Life-Threatening, Disabling, Other)
  Sender: FDA-Public Use
  Company Number: None

PATIENT
  Age: 65 Year
  Sex: Female
  Weight: 65.25 kg

DRUGS (1)
  1. CIPRO [Suspect]
     Active Substance: CIPROFLOXACIN HYDROCHLORIDE
     Indication: Ear infection
     Dates: start: 20201227, end: 20210105

REACTIONS (19)
  - Tendon disorder [None]
  - Muscle tightness [None]
  - Muscle atrophy [None]
  - Jugular vein distension [None]
  - Palpitations [None]
  - Cyanosis [None]
  - Skin discolouration [None]
  - Dysstasia [None]
  - Feeding disorder [None]
  - Bedridden [None]
  - Muscle tightness [None]
  - Back pain [None]
  - Burning sensation [None]
  - Vision blurred [None]
  - Weight decreased [None]
  - Photosensitivity reaction [None]
  - Rash macular [None]
  - Skin burning sensation [None]
  - Pain [None]

NARRATIVE: CASE EVENT DATE: 20201227
